FAERS Safety Report 12378192 (Version 1)
Quarter: 2016Q2

REPORT INFORMATION
  Report Type: Spontaneous
  Country: FR (occurrence: FR)
  Receive Date: 20160517
  Receipt Date: 20160517
  Transmission Date: 20160815
  Serious: Yes (Hospitalization, Other)
  Sender: FDA-Public Use
  Company Number: FR-ASTRAZENECA-2016SE50167

PATIENT
  Age: 19183 Day
  Sex: Male

DRUGS (2)
  1. BRILIQUE [Suspect]
     Active Substance: TICAGRELOR
     Route: 048
     Dates: start: 201602, end: 20160402
  2. KARDEGIC [Suspect]
     Active Substance: ASPIRIN LYSINE
     Route: 048
     Dates: start: 201602

REACTIONS (7)
  - Rib fracture [Unknown]
  - Iron deficiency anaemia [Recovered/Resolved]
  - Spinal fracture [Unknown]
  - Large intestine polyp [Unknown]
  - Muscle haemorrhage [Recovered/Resolved]
  - Fall [Unknown]
  - Oesophageal disorder [Unknown]

NARRATIVE: CASE EVENT DATE: 20160402
